FAERS Safety Report 20263276 (Version 2)
Quarter: 2022Q1

REPORT INFORMATION
  Report Type: Spontaneous
  Country: US (occurrence: US)
  Receive Date: 20211231
  Receipt Date: 20220304
  Transmission Date: 20220423
  Serious: No
  Sender: FDA-Public Use
  Company Number: US-ALXN-A202114261

PATIENT
  Sex: Male

DRUGS (2)
  1. SOLIRIS [Suspect]
     Active Substance: ECULIZUMAB
     Indication: Myasthenia gravis
     Dosage: 1200 MG, Q2W
     Route: 042
     Dates: start: 202109
  2. LASIX                              /00032601/ [Concomitant]
     Indication: Product used for unknown indication
     Dosage: UNK
     Route: 065

REACTIONS (1)
  - Hypertension [Unknown]
